FAERS Safety Report 10020670 (Version 4)
Quarter: 2014Q2

REPORT INFORMATION
  Report Type: Spontaneous
  Country: JP (occurrence: None)
  Receive Date: 20131125
  Receipt Date: 20140411
  Transmission Date: 20141212
  Serious: Yes (Hospitalization)
  Sender: FDA-Public Use
  Company Number: JP-013746

PATIENT
  Age: 80 Year
  Sex: Male
  Weight: 62.3 kg

DRUGS (6)
  1. FIRMAGON [Suspect]
     Indication: PROSTATE CANCER
     Route: 058
     Dates: start: 20121219, end: 20121219
  2. CASODEX (CASODEX) [Concomitant]
     Indication: PROSTATE CANCER
     Route: 048
     Dates: start: 20131009
  3. EXFORGE [Concomitant]
  4. BABY ASPIRIN [Concomitant]
  5. LANSOPRAZOLE [Concomitant]
  6. AMARYL [Concomitant]

REACTIONS (6)
  - Rhabdomyolysis [None]
  - Asthenia [None]
  - Cerebral infarction [None]
  - Hypercreatininaemia [None]
  - Myocardial ischaemia [None]
  - Atonic seizures [None]
